FAERS Safety Report 6593418-2 (Version None)
Quarter: 2010Q1

REPORT INFORMATION
  Report Type: 
  Country: None (occurrence: None)
  Receive Date: 20100222
  Receipt Date: 20090414
  Transmission Date: 20100710
  Serious: No
  Sender: FDA-Public Use
  Company Number: US-BRISTOL-MYERS SQUIBB COMPANY-14587315

PATIENT
  Age: 54 Year
  Sex: Female
  Weight: 52 kg

DRUGS (4)
  1. ORENCIA [Suspect]
     Indication: RHEUMATOID ARTHRITIS
     Dosage: SECOND INFUSION GIVEN ON 06APR09. NO OF INFUSIONS: 2.
     Dates: start: 20090319
  2. CELEBREX [Concomitant]
  3. EFFEXOR [Concomitant]
  4. LIPITOR [Concomitant]

REACTIONS (1)
  - DIZZINESS [None]
